FAERS Safety Report 7459556-7 (Version None)
Quarter: 2011Q2

REPORT INFORMATION
  Report Type: 
  Country: None (occurrence: None)
  Receive Date: 20110505
  Receipt Date: 20110426
  Transmission Date: 20111010
  Serious: Yes (Hospitalization)
  Sender: FDA-Public Use
  Company Number: PL-BRISTOL-MYERS SQUIBB COMPANY-15683857

PATIENT
  Age: 38 Year
  Sex: Female

DRUGS (2)
  1. RELANIUM [Concomitant]
     Indication: SLEEP DISORDER
     Dates: start: 20110405
  2. ARIPIPRAZOLE [Suspect]
     Indication: SCHIZOPHRENIA
     Route: 030
     Dates: start: 20101124

REACTIONS (1)
  - SCHIZOPHRENIA [None]
